FAERS Safety Report 8305527-8 (Version None)
Quarter: 2012Q2

REPORT INFORMATION
  Report Type: 
  Country: None (occurrence: None)
  Receive Date: 20120423
  Receipt Date: 20120411
  Transmission Date: 20120825
  Serious: Yes (Death, Hospitalization)
  Sender: FDA-Public Use
  Company Number: GB-GLAXOSMITHKLINE-B0796463A

PATIENT
  Sex: Female

DRUGS (7)
  1. LAPATINIB [Suspect]
     Indication: BREAST CANCER METASTATIC
     Route: 065
     Dates: start: 20110304
  2. HERCEPTIN [Concomitant]
  3. CAPECITABINE [Suspect]
     Indication: BREAST CANCER METASTATIC
     Route: 065
     Dates: start: 20110304
  4. DEXAMETHASONE [Suspect]
     Indication: METASTASES TO CENTRAL NERVOUS SYSTEM
     Route: 065
  5. ACYCLOVIR [Suspect]
     Indication: PRODUCT USED FOR UNKNOWN INDICATION
     Route: 065
  6. ZOLEDRONOC ACID [Concomitant]
  7. BISPHOSPHONATES (NOS) [Concomitant]

REACTIONS (38)
  - DIARRHOEA [None]
  - COORDINATION ABNORMAL [None]
  - DIZZINESS [None]
  - MYOPATHY [None]
  - GAIT DISTURBANCE [None]
  - OEDEMA [None]
  - SKIN TOXICITY [None]
  - RASH [None]
  - GASTROOESOPHAGEAL REFLUX DISEASE [None]
  - GASTROINTESTINAL TOXICITY [None]
  - MALAISE [None]
  - RASH PUSTULAR [None]
  - INGROWING NAIL [None]
  - PALMAR-PLANTAR ERYTHRODYSAESTHESIA SYNDROME [None]
  - FATIGUE [None]
  - BRONCHITIS VIRAL [None]
  - SCAB [None]
  - SKIN CHAPPED [None]
  - PURULENT DISCHARGE [None]
  - ABDOMINAL DISTENSION [None]
  - ABDOMINAL PAIN [None]
  - RASH MACULO-PAPULAR [None]
  - HEADACHE [None]
  - VOMITING [None]
  - DRY SKIN [None]
  - MUSCLE ATROPHY [None]
  - ERYTHEMA [None]
  - CUSHINGOID [None]
  - DEATH [None]
  - LOCALISED INFECTION [None]
  - PAIN IN EXTREMITY [None]
  - SKIN ULCER [None]
  - LIP ULCERATION [None]
  - MUSCULAR WEAKNESS [None]
  - CHEST PAIN [None]
  - BURSITIS [None]
  - METASTASES TO CENTRAL NERVOUS SYSTEM [None]
  - JOINT SWELLING [None]
